FAERS Safety Report 8475833-5 (Version None)
Quarter: 2012Q2

REPORT INFORMATION
  Report Type: 
  Country: None (occurrence: None)
  Receive Date: 20120621
  Receipt Date: 20120611
  Transmission Date: 20120825
  Serious: Yes (Hospitalization)
  Sender: FDA-Public Use
  Company Number: 2012SP031792

PATIENT
  Age: 60 Year
  Sex: Female
  Weight: 48 kg

DRUGS (9)
  1. REBETOL [Suspect]
     Indication: HEPATITIS C
     Dosage: 600 MG;QD;PO ; 400 MG;QD;PO ; 200 MG;QD;PO
     Route: 048
     Dates: start: 20120515
  2. REBETOL [Suspect]
     Indication: HEPATITIS C
     Dosage: 600 MG;QD;PO ; 400 MG;QD;PO ; 200 MG;QD;PO
     Route: 048
     Dates: start: 20120511, end: 20120514
  3. TPN ELECTROLYTES IN PLASTIC CONTAINER [Concomitant]
  4. NEUFAN [Concomitant]
  5. PEG-INTRON [Suspect]
     Indication: HEPATITIS C
     Dosage: 1.5 MCG/KG;QW;PARN ; 1.0 MCG/KG;QW;PARN ; 1.5 MCG/KG;QW;PARN
     Dates: start: 20120525
  6. PEG-INTRON [Suspect]
     Indication: HEPATITIS C
     Dosage: 1.5 MCG/KG;QW;PARN ; 1.0 MCG/KG;QW;PARN ; 1.5 MCG/KG;QW;PARN
     Dates: start: 20120518
  7. TELAVIC (ANTIVIRALS NOS) [Suspect]
     Indication: HEPATITIS C
     Dosage: 1500 MG;QD;PO ; 1000 MG;QD;PO ; 500 MG;QD;PO
     Route: 048
     Dates: start: 20120417
  8. TELAVIC (ANTIVIRALS NOS) [Suspect]
     Indication: HEPATITIS C
     Dosage: 1500 MG;QD;PO ; 1000 MG;QD;PO ; 500 MG;QD;PO
     Route: 048
     Dates: start: 20120514, end: 20120524
  9. TELAVIC (ANTIVIRALS NOS) [Suspect]
     Indication: HEPATITIS C
     Dosage: 1500 MG;QD;PO ; 1000 MG;QD;PO ; 500 MG;QD;PO
     Route: 048
     Dates: start: 20120524

REACTIONS (2)
  - RENAL FAILURE [None]
  - HYPERURICAEMIA [None]
